FAERS Safety Report 11617060 (Version 1)
Quarter: 2015Q4

REPORT INFORMATION
  Report Type: Report from Study
  Country: NL (occurrence: NL)
  Receive Date: 20151009
  Receipt Date: 20151009
  Transmission Date: 20160304
  Serious: Yes (Hospitalization)
  Sender: FDA-Public Use
  Company Number: PHHY2015NL118216

PATIENT
  Age: 57 Year
  Sex: Male

DRUGS (1)
  1. SANDOSTATINE LAR [Suspect]
     Active Substance: OCTREOTIDE ACETATE
     Indication: NEUROENDOCRINE TUMOUR
     Dosage: 20 MG PER 20 ML, ONCE EVERY 3 WEEKS
     Route: 030

REACTIONS (5)
  - Inappropriate schedule of drug administration [Unknown]
  - Flank pain [Recovered/Resolved]
  - Off label use [Unknown]
  - Nephrolithiasis [Recovering/Resolving]
  - Renal impairment [Not Recovered/Not Resolved]

NARRATIVE: CASE EVENT DATE: 20150903
